FAERS Safety Report 10166342 (Version 2)
Quarter: 2014Q2

REPORT INFORMATION
  Report Type: Spontaneous
  Country: PT (occurrence: PT)
  Receive Date: 20140512
  Receipt Date: 20140613
  Transmission Date: 20141212
  Serious: Yes (Other)
  Sender: FDA-Public Use
  Company Number: PT-ROCHE-1397143

PATIENT
  Age: 48 Year
  Sex: Male
  Weight: 77 kg

DRUGS (6)
  1. COPEGUS [Suspect]
     Indication: HEPATITIS C VIRUS TEST POSITIVE
     Route: 048
     Dates: start: 20130403, end: 20130503
  2. PEGASYS [Interacting]
     Indication: HEPATITIS C VIRUS TEST POSITIVE
     Route: 058
     Dates: start: 20130403, end: 20130503
  3. INCIVO [Interacting]
     Indication: HEPATITIS C VIRUS TEST POSITIVE
     Route: 065
     Dates: start: 20130403, end: 20130626
  4. PANTOPRAZOL [Concomitant]
     Indication: GASTRITIS
     Route: 048
     Dates: start: 2010
  5. NEORECORMON [Concomitant]
     Indication: PRODUCT USED FOR UNKNOWN INDICATION
     Route: 058
     Dates: start: 20130306, end: 20130427
  6. NEORECORMON [Concomitant]
     Route: 058

REACTIONS (11)
  - Scab [Recovering/Resolving]
  - Oropharyngeal discomfort [Recovering/Resolving]
  - Rhinorrhoea [Recovering/Resolving]
  - Aphthous stomatitis [Recovered/Resolved]
  - Rash [Recovered/Resolved]
  - Photophobia [Recovered/Resolved]
  - Rash [Recovered/Resolved]
  - Cough [Recovered/Resolved]
  - Rash [Recovered/Resolved]
  - Myalgia [Recovered/Resolved]
  - Asthenia [Recovered/Resolved]
